FAERS Safety Report 6342638 (Version 2)
Quarter: 2020Q3

REPORT INFORMATION
  Report Type: Report from Study
  Country: DE (occurrence: DE)
  Receive Date: 20070626
  Receipt Date: 20070810
  Transmission Date: 20201105
  Serious: Yes (Other)
  Sender: FDA-Public Use
  Company Number: DE-ROCHE-502353

PATIENT
  Age: 78 Year
  Sex: Female
  Weight: 54 kg

DRUGS (11)
  1. RIBOMUSTIN [Suspect]
     Active Substance: BENDAMUSTINE HYDROCHLORIDE
     Indication: PRODUCT USED FOR UNKNOWN INDICATION
     Route: 065
     Dates: start: 20070319
  2. BISOPROLOL [Concomitant]
     Active Substance: BISOPROLOL
     Dosage: DRUG NAME REPORTED AS BISOPROLO STADA 5. TDD REPORTED AS 1/2?0?1/2
  3. EPOETIN BETA [Concomitant]
     Active Substance: ERYTHROPOIETIN
     Dosage: DOSE REPORTED AS 30, NO UNITS PROVIDED
     Dates: start: 20070605, end: 20070709
  4. LOSARTAN POTASSIUM AND HYDROCHLOROTHIAZIDE [Concomitant]
     Active Substance: HYDROCHLOROTHIAZIDE\LOSARTAN POTASSIUM
     Dosage: TDD REPORTED AS 1/2?0?0
  5. IBANDRONIC ACID. [Suspect]
     Active Substance: IBANDRONIC ACID
     Indication: PLASMA CELL MYELOMA
     Route: 042
     Dates: start: 20070522, end: 20070522
  6. OMEPRAZOLE. [Concomitant]
     Active Substance: OMEPRAZOLE
     Dosage: TDD REPORTED AS 1?0?0
     Dates: start: 20070327
  7. NEUPOGEN [Concomitant]
     Active Substance: FILGRASTIM
     Dates: start: 20070529, end: 20070530
  8. PREDNISOLONE. [Suspect]
     Active Substance: PREDNISOLONE
     Indication: PRODUCT USED FOR UNKNOWN INDICATION
     Route: 065
     Dates: start: 20070319
  9. CALCIUM\IPRIFLAVONE\MAGNESIUM\MINERALS [Concomitant]
     Dosage: TDD REPORTED AS 1?0?0
  10. PHENOBARBITAL. [Concomitant]
     Active Substance: PHENOBARBITAL
     Dosage: DRUG NAME REPORTED AS VALOCORDIN?TROPTE
  11. FELODIPINE. [Concomitant]
     Active Substance: FELODIPINE
     Dosage: DRUG NAME REPORTED AS FELODIPIN SANDOZ

REACTIONS (1)
  - Creatinine renal clearance decreased [Not Recovered/Not Resolved]

NARRATIVE: CASE EVENT DATE: 20070611
